FAERS Safety Report 20526432 (Version 1)
Quarter: 2022Q1

REPORT INFORMATION
  Report Type: Spontaneous
  Country: US (occurrence: None)
  Receive Date: 20220225
  Receipt Date: 20220225
  Transmission Date: 20220424
  Serious: Yes (Hospitalization)
  Sender: FDA-Public Use
  Company Number: None

PATIENT
  Age: 54 Year
  Sex: Female
  Weight: 104.85 kg

DRUGS (17)
  1. CAPECITABINE [Suspect]
     Active Substance: CAPECITABINE
     Indication: Breast cancer
     Dosage: OTHER FREQUENCY : BID FOR 14/21 DAYS;?
     Route: 048
     Dates: start: 20220119
  2. Allegra D 60-120mg [Concomitant]
  3. Calcium-Vitamin D 600mg-200IU [Concomitant]
  4. Duragesic 25mcg/hr [Concomitant]
  5. Lidocaine-Prilocaine 2.5-2.5% [Concomitant]
  6. LYRICA [Concomitant]
     Active Substance: PREGABALIN
  7. MUPIROCIN [Concomitant]
     Active Substance: MUPIROCIN
  8. NORCO [Concomitant]
     Active Substance: ACETAMINOPHEN\HYDROCODONE BITARTRATE
  9. PROAIR HFA [Concomitant]
     Active Substance: ALBUTEROL SULFATE
  10. Prochlorperazine 10mg [Concomitant]
  11. SEROQUEL [Concomitant]
     Active Substance: QUETIAPINE FUMARATE
  12. SERTRALINE [Concomitant]
     Active Substance: SERTRALINE HYDROCHLORIDE
  13. SIMVASTATIN [Concomitant]
     Active Substance: SIMVASTATIN
  14. TRIAMCINOLONE [Concomitant]
     Active Substance: TRIAMCINOLONE
  15. Dimethicone 5% [Concomitant]
  16. WARFARIN [Concomitant]
     Active Substance: WARFARIN
  17. Zinc 50mg [Concomitant]

REACTIONS (1)
  - Hospitalisation [None]

NARRATIVE: CASE EVENT DATE: 20220225
